FAERS Safety Report 10686366 (Version 9)
Quarter: 2016Q2

REPORT INFORMATION
  Report Type: Report from Study
  Country: US (occurrence: US)
  Receive Date: 20141231
  Receipt Date: 20160502
  Transmission Date: 20160815
  Serious: Yes (Death, Hospitalization, Other)
  Sender: FDA-Public Use
  Company Number: US-ACTELION-A-NJ2014-110271

PATIENT
  Age: 41 Year
  Sex: Female

DRUGS (6)
  1. COUMADIN [Concomitant]
     Active Substance: WARFARIN SODIUM
  2. ADCIRCA [Concomitant]
     Active Substance: TADALAFIL
  3. REMODULIN [Concomitant]
     Active Substance: TREPROSTINIL
  4. TRACLEER [Suspect]
     Active Substance: BOSENTAN
     Indication: PULMONARY ARTERIAL HYPERTENSION
     Dosage: UNK
     Route: 048
     Dates: end: 20160417
  5. TYVASO [Concomitant]
     Active Substance: TREPROSTINIL
  6. TRACLEER [Suspect]
     Active Substance: BOSENTAN
     Dosage: UNK
     Route: 048

REACTIONS (18)
  - Dyspnoea [Unknown]
  - Pancreatitis [Unknown]
  - Syncope [Unknown]
  - Pulmonary arterial hypertension [Unknown]
  - Fatigue [Unknown]
  - Abdominal pain [Unknown]
  - Lung infection [Unknown]
  - Hypotension [Unknown]
  - Atrial fibrillation [Unknown]
  - Dialysis [Unknown]
  - Condition aggravated [Unknown]
  - Death [Fatal]
  - Drug hypersensitivity [Unknown]
  - Fluid retention [Unknown]
  - Nervousness [Unknown]
  - Tremor [Unknown]
  - Bacteraemia [Unknown]
  - Disorientation [Unknown]

NARRATIVE: CASE EVENT DATE: 20141104
